FAERS Safety Report 7093170-0 (Version None)
Quarter: 2010Q4

REPORT INFORMATION
  Report Type: 
  Country: None (occurrence: None)
  Receive Date: 20101110
  Receipt Date: 20101027
  Transmission Date: 20110411
  Serious: Yes (Other)
  Sender: FDA-Public Use
  Company Number: DE-CELGENEUS-062-50794-10061556

PATIENT
  Age: 63 Year
  Sex: Male
  Weight: 80 kg

DRUGS (7)
  1. VIDAZA [Suspect]
     Route: 058
     Dates: start: 20090701, end: 20091101
  2. VIDAZA [Suspect]
     Route: 051
     Dates: start: 20091201, end: 20100401
  3. METOPROLOL SUCCINATE [Concomitant]
     Dosage: 1/2XDAY
     Route: 065
  4. LOSARTAN POTASSIUM AND HYDROCHLOROTHIAZIDE [Concomitant]
     Route: 065
  5. SIMVASTATIN [Concomitant]
     Route: 065
  6. RASILEZ [Concomitant]
     Route: 065
  7. ARIXTRA [Concomitant]
     Route: 058

REACTIONS (2)
  - PULMONARY FIBROSIS [None]
  - WEIGHT DECREASED [None]
